FAERS Safety Report 7632752-1 (Version None)
Quarter: 2011Q3

REPORT INFORMATION
  Report Type: 
  Country: None (occurrence: None)
  Receive Date: 20110725
  Receipt Date: 20101222
  Transmission Date: 20111222
  Serious: No
  Sender: FDA-Public Use
  Company Number: US-BRISTOL-MYERS SQUIBB COMPANY-15457260

PATIENT
  Age: 55 Year
  Sex: Female

DRUGS (6)
  1. COUMADIN [Suspect]
  2. TOPROL-XL [Suspect]
  3. PRAVASTATIN SODIUM [Suspect]
  4. AMIODARONE HCL [Suspect]
  5. SYNTHROID [Concomitant]
  6. MULTAQ [Suspect]
     Indication: ATRIAL FIBRILLATION
     Route: 048
     Dates: start: 20100901

REACTIONS (4)
  - DYSPNOEA [None]
  - SENSORY DISTURBANCE [None]
  - ARTHRALGIA [None]
  - GAIT DISTURBANCE [None]
